FAERS Safety Report 23575228 (Version 1)
Quarter: 2024Q1

REPORT INFORMATION
  Report Type: Spontaneous
  Country: IT (occurrence: IT)
  Receive Date: 20240228
  Receipt Date: 20240228
  Transmission Date: 20240409
  Serious: Yes (Death, Hospitalization)
  Sender: FDA-Public Use
  Company Number: IT-MYLANLABS-2024M1017651

PATIENT
  Age: 89 Year
  Sex: Male

DRUGS (1)
  1. ESCITALOPRAM [Suspect]
     Active Substance: ESCITALOPRAM OXALATE
     Indication: Product used for unknown indication
     Dosage: UNK, ONE 10MG TABLET DAILY; THE NURSE HAD..
     Route: 048

REACTIONS (9)
  - Wrong technique in product usage process [Fatal]
  - Toxicity to various agents [Fatal]
  - Foreign body aspiration [Fatal]
  - Coma [Fatal]
  - Cardiogenic shock [Fatal]
  - Acute respiratory failure [Fatal]
  - Respiratory distress [Fatal]
  - Tachycardia [Fatal]
  - Sopor [Fatal]
